FAERS Safety Report 14131606 (Version 1)
Quarter: 2017Q4

REPORT INFORMATION
  Report Type: Spontaneous
  Country: FR (occurrence: FR)
  Receive Date: 20171026
  Receipt Date: 20171026
  Transmission Date: 20180321
  Serious: Yes (Other)
  Sender: FDA-Public Use
  Company Number: FR-MERCK KGAA-2031600

PATIENT
  Age: 62 Year
  Sex: Female

DRUGS (1)
  1. NOVOTHYROX [Suspect]
     Active Substance: LEVOTHYROXINE SODIUM
     Indication: AUTOIMMUNE THYROIDITIS
     Route: 048
     Dates: start: 20170830

REACTIONS (10)
  - Nausea [Unknown]
  - Dyspnoea [Unknown]
  - Swelling face [Unknown]
  - Insomnia [Unknown]
  - Fatigue [Unknown]
  - Memory impairment [Unknown]
  - Decreased appetite [Unknown]
  - Chills [Unknown]
  - Headache [Unknown]
  - Blood thyroid stimulating hormone increased [Unknown]

NARRATIVE: CASE EVENT DATE: 201708
